FAERS Safety Report 4546582-0 (Version None)
Quarter: 2005Q1

REPORT INFORMATION
  Report Type: 
  Country: None (occurrence: None)
  Receive Date: 20050103
  Receipt Date: 20041215
  Transmission Date: 20050727
  Serious: Yes (Disabling)
  Sender: FDA-Public Use
  Company Number: DE_041214837

PATIENT
  Age: 65 Year
  Sex: Male
  Weight: 95 kg

DRUGS (5)
  1. ALIMTA [Suspect]
     Indication: PLEURAL MESOTHELIOMA
     Dosage: 1000 MG
     Dates: start: 20040109, end: 20040730
  2. CARBOPLATIN [Suspect]
     Indication: PLEURAL MESOTHELIOMA
     Dosage: 350 MG
     Dates: start: 20040109, end: 20040730
  3. DEXAMETHASONE [Concomitant]
  4. FOLIC ACID [Concomitant]
  5. VITAMIN B-12 [Concomitant]

REACTIONS (3)
  - DEAFNESS [None]
  - DIZZINESS [None]
  - VESTIBULAR NEURONITIS [None]
